FAERS Safety Report 14525527 (Version 1)
Quarter: 2018Q1

REPORT INFORMATION
  Report Type: Spontaneous
  Country: US (occurrence: US)
  Receive Date: 20180213
  Receipt Date: 20180213
  Transmission Date: 20180509
  Serious: No
  Sender: FDA-Public Use
  Company Number: US-PERRIGO-18US000152

PATIENT
  Age: 42 Year
  Sex: Male
  Weight: 93.42 kg

DRUGS (1)
  1. SCOPOLAMINE [Suspect]
     Active Substance: SCOPOLAMINE
     Indication: MOTION SICKNESS
     Dosage: 1 MG, Q 3 DAYS AS NEEDED
     Route: 062
     Dates: start: 20150130

REACTIONS (3)
  - Nasal dryness [Not Recovered/Not Resolved]
  - Product administered at inappropriate site [Unknown]
  - Dry mouth [Not Recovered/Not Resolved]

NARRATIVE: CASE EVENT DATE: 20150130
